FAERS Safety Report 4502790-6 (Version None)
Quarter: 2004Q4

REPORT INFORMATION
  Report Type: 
  Country: None (occurrence: None)
  Receive Date: 20041116
  Receipt Date: 20041116
  Transmission Date: 20050328
  Serious: Yes (Life-Threatening, Hospitalization)
  Sender: FDA-Public Use
  Company Number: None

PATIENT
  Age: 44 Year
  Sex: Female
  Weight: 67.1324 kg

DRUGS (13)
  1. ENBREL [Suspect]
     Indication: SYSTEMIC LUPUS ERYTHEMATOSUS
     Dosage: 25 MG. TWICE WEEKLY SUBCUTANEO
     Route: 058
     Dates: start: 20030530, end: 20040612
  2. BEXTRA [Concomitant]
  3. METHOTREXATE [Concomitant]
  4. PRILOSEC [Concomitant]
  5. ELAVIL [Concomitant]
  6. PRACQUENIL [Concomitant]
  7. WELLBUTRIN [Concomitant]
  8. PREDNISONE [Concomitant]
  9. ZOFRAN [Concomitant]
  10. COMPAZINE [Concomitant]
  11. ATIVAN [Concomitant]
  12. MINOCYCLINE HCL [Concomitant]
  13. ALBUTEROL [Concomitant]

REACTIONS (5)
  - ABSCESS ORAL [None]
  - CELLULITIS [None]
  - LYMPHADENOPATHY [None]
  - POSTOPERATIVE INFECTION [None]
  - SINUSITIS [None]
